FAERS Safety Report 20699389 (Version 2)
Quarter: 2022Q2

REPORT INFORMATION
  Report Type: Other
  Country: FR (occurrence: FR)
  Receive Date: 20220412
  Receipt Date: 20220531
  Transmission Date: 20220721
  Serious: Yes (Hospitalization, Other)
  Sender: FDA-Public Use
  Company Number: None

PATIENT
  Age: 58 Year
  Sex: Female
  Weight: 105 kg

DRUGS (3)
  1. TACROLIMUS [Interacting]
     Active Substance: TACROLIMUS
     Indication: Renal transplant
     Route: 048
     Dates: end: 20220316
  2. TACROLIMUS [Interacting]
     Active Substance: TACROLIMUS
     Route: 048
     Dates: start: 20220322, end: 20220326
  3. PAXLOVID [Interacting]
     Active Substance: NIRMATRELVIR\RITONAVIR
     Indication: COVID-19 treatment
     Dosage: 2 DF, TWICE DAILY (1 MORNING AND 1 EVENING)
     Route: 048
     Dates: start: 20220317, end: 20220321

REACTIONS (3)
  - Immunosuppressant drug level increased [Recovered/Resolved]
  - Renal failure [Not Recovered/Not Resolved]
  - Drug interaction [Recovered/Resolved]

NARRATIVE: CASE EVENT DATE: 20220301
